FAERS Safety Report 9344570 (Version 3)
Quarter: 2013Q3

REPORT INFORMATION
  Report Type: Spontaneous
  Country: US (occurrence: US)
  Receive Date: 20130612
  Receipt Date: 20130806
  Transmission Date: 20140515
  Serious: No
  Sender: FDA-Public Use
  Company Number: US-PFIZER INC-2013177134

PATIENT
  Age: 48 Year
  Sex: Female
  Weight: 93.88 kg

DRUGS (11)
  1. LYRICA [Suspect]
     Indication: FIBROMYALGIA
     Dosage: 300 MG (2X 150 MG), 2X/DAY
     Route: 048
  2. LYRICA [Suspect]
     Indication: PAIN
  3. FLUOXETINE HYDROCHLORIDE [Concomitant]
     Indication: DEPRESSION
     Dosage: 60 MG (3 X 20 MG), DAILY
  4. ESTRADIOL [Concomitant]
     Indication: HORMONE REPLACEMENT THERAPY
     Dosage: 1 MG, DAILY
  5. HYDROCHLOROTHIAZIDE/TRIAMTERENE [Concomitant]
     Indication: HYPERTENSION
     Dosage: 25/37.5 MG, DAILY
  6. ATENOLOL [Concomitant]
     Indication: HYPERTENSION
     Dosage: 25 MG, DAILY
  7. ALPRAZOLAM [Concomitant]
     Indication: ANXIETY
     Dosage: 0.5 MG, 2X/DAY
  8. PRIMIDONE [Concomitant]
     Indication: TREMOR
     Dosage: 50 MG, 2X/DAY
  9. OMEPRAZOLE [Concomitant]
     Indication: GASTROOESOPHAGEAL REFLUX DISEASE
     Dosage: 40 MG (2X20 MG), DAILY IN THE MORNING
  10. ZOLPIDEM [Concomitant]
     Indication: SLEEP DISORDER
     Dosage: UNK, DAILY AT BED TIME
  11. TRAMADOL HYDROCHLORIDE [Concomitant]
     Dosage: 50 MG, DAILY AT BED TIME

REACTIONS (4)
  - Feeling abnormal [Unknown]
  - Pain [Unknown]
  - Malaise [Unknown]
  - Bedridden [Unknown]
